FAERS Safety Report 12779442 (Version 7)
Quarter: 2016Q4

REPORT INFORMATION
  Report Type: Report from Study
  Country: FR (occurrence: FR)
  Receive Date: 20160926
  Receipt Date: 20161116
  Transmission Date: 20170207
  Serious: Yes (Death, Hospitalization)
  Sender: FDA-Public Use
  Company Number: PHHY2016FR130243

PATIENT
  Age: 70 Year
  Sex: Female

DRUGS (3)
  1. AFINITOR [Suspect]
     Active Substance: EVEROLIMUS
     Indication: BREAST CANCER
     Dosage: 5 MG/JOUR, QD
     Route: 048
     Dates: start: 20151130, end: 20160209
  2. EXEMESTANE. [Concomitant]
     Active Substance: EXEMESTANE
     Indication: PRODUCT USED FOR UNKNOWN INDICATION
     Dosage: 25 MG, QD
     Route: 048
     Dates: start: 20151130, end: 20160809
  3. AFINITOR [Suspect]
     Active Substance: EVEROLIMUS
     Dosage: 10 MG, QD
     Route: 048
     Dates: start: 20160210, end: 20160727

REACTIONS (8)
  - Lung disorder [Recovering/Resolving]
  - Malignant neoplasm progression [Fatal]
  - Dyspnoea [Recovering/Resolving]
  - Cachexia [Unknown]
  - Atelectasis [Recovering/Resolving]
  - General physical health deterioration [Fatal]
  - Pleural effusion [Recovering/Resolving]
  - Malnutrition [Unknown]

NARRATIVE: CASE EVENT DATE: 20160831
